FAERS Safety Report 5383633-8 (Version None)
Quarter: 2007Q3

REPORT INFORMATION
  Report Type: 
  Country: None (occurrence: None)
  Receive Date: 20070706
  Receipt Date: 20070625
  Transmission Date: 20080115
  Serious: Yes (Hospitalization)
  Sender: FDA-Public Use
  Company Number: 2007BI006948

PATIENT
  Age: 66 Year
  Sex: Male

DRUGS (1)
  1. AVONEX [Suspect]
     Indication: MULTIPLE SCLEROSIS
     Dosage: 30 UG;QW; IM
     Route: 030
     Dates: start: 20040902, end: 20070128

REACTIONS (3)
  - AMNESIA [None]
  - HYPOAESTHESIA [None]
  - TRANSIENT ISCHAEMIC ATTACK [None]
